FAERS Safety Report 5040424-5 (Version None)
Quarter: 2006Q2

REPORT INFORMATION
  Report Type: 
  Country: None (occurrence: None)
  Receive Date: 20060630
  Receipt Date: 20060628
  Transmission Date: 20061013
  Serious: Yes (Death)
  Sender: FDA-Public Use
  Company Number: FR-GLAXOSMITHKLINE-B0429234A

PATIENT
  Age: 75 Year
  Sex: Female
  Weight: 78 kg

DRUGS (11)
  1. AUGMENTIN '125' [Suspect]
     Indication: CYSTITIS
     Dosage: 2G PER DAY
     Route: 048
     Dates: start: 20060525
  2. MOTILIUM [Suspect]
     Route: 048
  3. SPASFON [Suspect]
     Route: 048
  4. FURADANTIN [Suspect]
     Route: 048
  5. CETIRIZINE HCL [Suspect]
     Route: 048
  6. ACECLOFENAC [Suspect]
     Route: 048
  7. PIRACETAM [Concomitant]
     Route: 065
  8. VITAMIN D3 [Concomitant]
     Route: 065
  9. TOPLEXIL [Concomitant]
     Route: 065
  10. ZOFENOPRIL [Concomitant]
     Route: 065
  11. LEVOTHYROX [Concomitant]
     Route: 065

REACTIONS (25)
  - AGITATION [None]
  - ALANINE AMINOTRANSFERASE INCREASED [None]
  - ASPARTATE AMINOTRANSFERASE INCREASED [None]
  - BILIARY TRACT DISORDER [None]
  - BLOOD BILIRUBIN INCREASED [None]
  - BLOOD PHOSPHORUS INCREASED [None]
  - CARDIAC ARREST [None]
  - CHOLESTASIS [None]
  - COAGULATION FACTOR DECREASED [None]
  - COMA [None]
  - CONFUSIONAL STATE [None]
  - DEPRESSED LEVEL OF CONSCIOUSNESS [None]
  - FLUID OVERLOAD [None]
  - GALLBLADDER ENLARGEMENT [None]
  - GAMMA-GLUTAMYLTRANSFERASE INCREASED [None]
  - HEPATIC ENCEPHALOPATHY [None]
  - HEPATIC FAILURE [None]
  - HEPATITIS [None]
  - HEPATITIS ACUTE [None]
  - HEPATOCELLULAR DAMAGE [None]
  - HEPATORENAL SYNDROME [None]
  - NERVOUS SYSTEM DISORDER [None]
  - NEUROLOGICAL SYMPTOM [None]
  - OLIGURIA [None]
  - RESPIRATORY FAILURE [None]
